FAERS Safety Report 17818114 (Version 1)
Quarter: 2020Q2

REPORT INFORMATION
  Report Type: Report from Study
  Country: ES (occurrence: ES)
  Receive Date: 20200522
  Receipt Date: 20200522
  Transmission Date: 20200714
  Serious: Yes (Hospitalization)
  Sender: FDA-Public Use
  Company Number: ES-MYLANLABS-2020M1050714

PATIENT
  Age: 51 Year
  Sex: Male

DRUGS (4)
  1. OMEPRAZOL                          /00661201/ [Concomitant]
     Active Substance: OMEPRAZOLE
     Indication: GASTRITIS PROPHYLAXIS
     Dosage: 20 MILLIGRAM, QD
     Route: 048
     Dates: start: 201807
  2. PRAVASTATIN. [Suspect]
     Active Substance: PRAVASTATIN
     Indication: DYSLIPIDAEMIA
     Dosage: 40 MILLIGRAM, QD
     Route: 048
     Dates: start: 201408
  3. ADIRO [Interacting]
     Active Substance: ASPIRIN
     Indication: AORTIC ANEURYSM
     Dosage: 100 MILLIGRAM, QD
     Route: 048
     Dates: start: 201302, end: 20190720
  4. SINTROM [Interacting]
     Active Substance: ACENOCOUMAROL
     Indication: AORTIC ANEURYSM
     Dosage: 1 DOSAGE FORM, PRN
     Route: 048
     Dates: start: 201208, end: 20190720

REACTIONS (2)
  - Drug interaction [Unknown]
  - Epistaxis [Recovered/Resolved]

NARRATIVE: CASE EVENT DATE: 20190720
